FAERS Safety Report 4670644-0 (Version None)
Quarter: 2005Q2

REPORT INFORMATION
  Report Type: 
  Country: None (occurrence: None)
  Receive Date: 20050523
  Receipt Date: 20041208
  Transmission Date: 20051028
  Serious: No
  Sender: FDA-Public Use
  Company Number: 9461

PATIENT
  Age: 40 Year
  Sex: Female

DRUGS (2)
  1. METHOTREXATE [Suspect]
     Indication: DESMOID TUMOUR
     Dosage: 50 MG WEEKLY
     Route: 042
  2. VINBLASTINE SULFATE [Suspect]
     Indication: DESMOID TUMOUR
     Dosage: 10 MG WEEKLY
     Route: 042

REACTIONS (5)
  - DIARRHOEA [None]
  - FATIGUE [None]
  - NAUSEA [None]
  - POLYNEUROPATHY [None]
  - VOMITING [None]
